FAERS Safety Report 11480901 (Version 3)
Quarter: 2015Q3

REPORT INFORMATION
  Report Type: Spontaneous
  Country: US (occurrence: None)
  Receive Date: 20150909
  Receipt Date: 20150923
  Transmission Date: 20151125
  Serious: Yes (Hospitalization, Other)
  Sender: FDA-Public Use
  Company Number: US-MDT-ADR-2015-01749

PATIENT
  Age: 22 Year
  Sex: Male

DRUGS (1)
  1. COMPOUNDED BACLOFEN INTRATHECAL 2000MCG/ML [Suspect]
     Active Substance: BACLOFEN
     Dosage: 927MCG/DAY

REACTIONS (5)
  - Dizziness [None]
  - Headache [None]
  - Nausea [None]
  - Vomiting [None]
  - Lethargy [None]
